FAERS Safety Report 7892637-2 (Version None)
Quarter: 2011Q4

REPORT INFORMATION
  Report Type: 
  Country: None (occurrence: None)
  Receive Date: 20111102
  Receipt Date: 20111025
  Transmission Date: 20120403
  Serious: Yes (Hospitalization, Other)
  Sender: FDA-Public Use
  Company Number: 2011SP002479

PATIENT
  Age: 42 Year
  Sex: Female
  Weight: 62.1428 kg

DRUGS (2)
  1. NUVARING [Suspect]
     Indication: CONTRACEPTION
     Dates: start: 20060101, end: 20061101
  2. VALTREX [Concomitant]

REACTIONS (30)
  - BRONCHITIS [None]
  - MOLE EXCISION [None]
  - INFLUENZA LIKE ILLNESS [None]
  - HAEMOGLOBIN DECREASED [None]
  - ACTINIC KERATOSIS [None]
  - DEEP VEIN THROMBOSIS [None]
  - MAMMOGRAM ABNORMAL [None]
  - EMOTIONAL DISORDER [None]
  - MENTAL DISORDER [None]
  - HYSTERECTOMY [None]
  - HAEMATOCRIT DECREASED [None]
  - SALPINGO-OOPHORECTOMY [None]
  - PULMONARY GRANULOMA [None]
  - THYROID NEOPLASM [None]
  - ORTHOSTATIC HYPOTENSION [None]
  - SMEAR CERVIX ABNORMAL [None]
  - CERVICITIS [None]
  - SINUS TACHYCARDIA [None]
  - INTERNATIONAL NORMALISED RATIO INCREASED [None]
  - HEAVY EXPOSURE TO ULTRAVIOLET LIGHT [None]
  - OVARIAN CYST [None]
  - RASH [None]
  - METRORRHAGIA [None]
  - TOOTH DISORDER [None]
  - HYPERCOAGULATION [None]
  - PETECHIAE [None]
  - PULMONARY EMBOLISM [None]
  - COAGULOPATHY [None]
  - DYSPAREUNIA [None]
  - LEIOMYOMA [None]
